FAERS Safety Report 6775688-0 (Version None)
Quarter: 2010Q2

REPORT INFORMATION
  Report Type: 
  Country: None (occurrence: None)
  Receive Date: 20100617
  Receipt Date: 20100608
  Transmission Date: 20101027
  Serious: Yes (Hospitalization)
  Sender: FDA-Public Use
  Company Number: DE-ABBOTT-10P-062-0637772-00

PATIENT
  Sex: Female
  Weight: 77 kg

DRUGS (3)
  1. HUMIRA [Suspect]
     Indication: PSORIASIS
     Route: 058
     Dates: start: 20080425
  2. HUMIRA [Suspect]
     Route: 058
     Dates: start: 20100324
  3. DAIVOBET [Concomitant]
     Indication: PSORIASIS
     Route: 061
     Dates: start: 20080627

REACTIONS (4)
  - BACK PAIN [None]
  - DYSTONIA [None]
  - INTERVERTEBRAL DISC PROTRUSION [None]
  - LUMBAR SPINAL STENOSIS [None]
